FAERS Safety Report 13681585 (Version 1)
Quarter: 2017Q2

REPORT INFORMATION
  Report Type: Spontaneous
  Country: US (occurrence: US)
  Receive Date: 20170623
  Receipt Date: 20170623
  Transmission Date: 20170830
  Serious: No
  Sender: FDA-Public Use
  Company Number: US-AUROBINDO-AUR-APL-2015-02055

PATIENT
  Sex: Female

DRUGS (1)
  1. PENICILLIN V POTASSIUM TABLETS USP 500MG [Suspect]
     Active Substance: PENICILLIN V POTASSIUM
     Indication: ORAL INFECTION
     Dosage: 500 MG, 1 TABLET EVERY 6 HRS
     Route: 048
     Dates: start: 20150204, end: 20150303

REACTIONS (2)
  - Medication residue present [Unknown]
  - Product quality issue [Unknown]
